FAERS Safety Report 6069045-2 (Version None)
Quarter: 2009Q1

REPORT INFORMATION
  Report Type: 
  Country: None (occurrence: None)
  Receive Date: 20090121
  Receipt Date: 20071130
  Transmission Date: 20090719
  Serious: Yes (Hospitalization, Other)
  Sender: FDA-Public Use
  Company Number: HQWYE420319AUG04

PATIENT
  Age: 72 Year
  Sex: Female

DRUGS (9)
  1. PREMPRO [Suspect]
     Indication: HORMONE REPLACEMENT THERAPY
  2. CYCRIN [Suspect]
  3. ESTRACE [Suspect]
  4. EVISTA [Suspect]
  5. MEDROXYPROGESTERONE [Suspect]
  6. PREMARIN [Suspect]
  7. PREMARIN [Suspect]
  8. PREMPHASE 14/14 [Suspect]
  9. PROVERA [Suspect]

REACTIONS (1)
  - BREAST CANCER [None]
